FAERS Safety Report 17681715 (Version 1)
Quarter: 2020Q2

REPORT INFORMATION
  Report Type: Spontaneous
  Country: TR (occurrence: TR)
  Receive Date: 20200417
  Receipt Date: 20200417
  Transmission Date: 20200714
  Serious: Yes (Other)
  Sender: FDA-Public Use
  Company Number: TR-009507513-2004TUR004410

PATIENT
  Age: 30 Year
  Sex: Female

DRUGS (2)
  1. GONADOTROPIN, CHORIONIC [Suspect]
     Active Substance: CHORIOGONADOTROPIN ALFA
     Indication: OVULATION INDUCTION
     Dosage: ON THE 10TH DAY OF THE CYCLE
  2. FOLLITROPIN BETA [Concomitant]
     Active Substance: FOLLITROPIN
     Indication: OVULATION INDUCTION

REACTIONS (2)
  - Drug exposure before pregnancy [Unknown]
  - Ectopic pregnancy [Recovered/Resolved]
